FAERS Safety Report 14203936 (Version 1)
Quarter: 2017Q4

REPORT INFORMATION
  Report Type: Spontaneous
  Country: US (occurrence: None)
  Receive Date: 20171117
  Receipt Date: 20171117
  Transmission Date: 20180321
  Serious: No
  Sender: FDA-Public Use
  Company Number: None

PATIENT
  Sex: Female

DRUGS (1)
  1. IBRANCE [Suspect]
     Active Substance: PALBOCICLIB
     Indication: BREAST CANCER FEMALE
     Route: 048
     Dates: start: 20170323

REACTIONS (7)
  - Asthenia [None]
  - Feeling abnormal [None]
  - Disturbance in attention [None]
  - Bradyphrenia [None]
  - Visual impairment [None]
  - Memory impairment [None]
  - White blood cell count decreased [None]
